FAERS Safety Report 12634159 (Version 4)
Quarter: 2017Q2

REPORT INFORMATION
  Report Type: Spontaneous
  Country: PT (occurrence: PT)
  Receive Date: 20160809
  Receipt Date: 20170524
  Transmission Date: 20170830
  Serious: Yes (Hospitalization, Other)
  Sender: FDA-Public Use
  Company Number: PT-GLAXOSMITHKLINE-PT2016114169

PATIENT
  Age: 30 Year
  Sex: Female
  Weight: 52 kg

DRUGS (1)
  1. ZOVIRAX [Suspect]
     Active Substance: ACYCLOVIR
     Indication: INFECTION PROPHYLAXIS
     Dosage: 200 MG, QD
     Route: 048
     Dates: start: 20160715, end: 20160726

REACTIONS (10)
  - Generalised oedema [Unknown]
  - Generalised erythema [Unknown]
  - Decreased appetite [Unknown]
  - Rash generalised [Unknown]
  - Pyrexia [Unknown]
  - Throat irritation [Unknown]
  - Delirium [Unknown]
  - Diet refusal [Unknown]
  - Respiratory distress [Unknown]
  - Hypotension [Unknown]

NARRATIVE: CASE EVENT DATE: 20160718
